FAERS Safety Report 7091858-9 (Version None)
Quarter: 2010Q4

REPORT INFORMATION
  Report Type: 
  Country: None (occurrence: None)
  Receive Date: 20101109
  Receipt Date: 20101103
  Transmission Date: 20110411
  Serious: Yes (Death, Hospitalization, Other)
  Sender: FDA-Public Use
  Company Number: DE-CELGENEUS-AZADE200700307

PATIENT
  Sex: Male

DRUGS (5)
  1. VIDAZA [Suspect]
     Indication: MYELODYSPLASTIC SYNDROME
     Route: 058
     Dates: start: 20070326, end: 20070330
  2. VIDAZA [Suspect]
     Route: 058
     Dates: start: 20070514, end: 20070518
  3. VALPROIC ACID [Concomitant]
     Indication: MYELODYSPLASTIC SYNDROME
     Route: 065
     Dates: start: 20070329, end: 20070621
  4. FILGRASTIM [Concomitant]
     Indication: APLASIA
     Route: 065
  5. FILGRASTIM [Concomitant]
     Indication: SEPSIS

REACTIONS (7)
  - FEBRILE NEUTROPENIA [None]
  - LEFT VENTRICULAR FAILURE [None]
  - PANCYTOPENIA [None]
  - PNEUMONIA [None]
  - PYREXIA [None]
  - SEPSIS [None]
  - SUPRAVENTRICULAR TACHYARRHYTHMIA [None]
